FAERS Safety Report 5982553-5 (Version None)
Quarter: 2008Q4

REPORT INFORMATION
  Report Type: 
  Country: None (occurrence: None)
  Receive Date: 20081208
  Receipt Date: 20081126
  Transmission Date: 20090506
  Serious: Yes (Other)
  Sender: FDA-Public Use
  Company Number: PHBS2008AU06459

PATIENT
  Age: 2 Year

DRUGS (1)
  1. CYCLOSPORINE [Suspect]
     Indication: LIVER TRANSPLANT

REACTIONS (5)
  - ABDOMINAL PAIN [None]
  - ASTHMA [None]
  - EOSINOPHILIC OESOPHAGITIS [None]
  - REGURGITATION [None]
  - RHINITIS [None]
